FAERS Safety Report 17185055 (Version 1)
Quarter: 2019Q4

REPORT INFORMATION
  Report Type: Spontaneous
  Country: US (occurrence: US)
  Receive Date: 20191220
  Receipt Date: 20191220
  Transmission Date: 20200122
  Serious: Yes (Hospitalization)
  Sender: FDA-Public Use
  Company Number: US-PFIZER INC-2019541159

PATIENT
  Sex: Male

DRUGS (6)
  1. ETIZOLAM [Suspect]
     Active Substance: ETIZOLAM
     Dosage: UNK, DAILY (RECENT ESCALATION TO 100 MG OR MORE DAILY, DISSOLVED, IN PROPYLENE GLYCOL)
  2. PROPYLENE GLYCOL [Concomitant]
     Active Substance: PROPYLENE GLYCOL
     Indication: VEHICLE SOLUTION USE
     Dosage: UNK (DISSOLVED THE ETIZOLAM IN PROPYLENE GLYCOL)
  3. DIAZEPAM. [Suspect]
     Active Substance: DIAZEPAM
     Dosage: UNK
  4. DICLAZEPAM [Suspect]
     Active Substance: 2-CHLORODIAZEPAM
     Dosage: UNK
  5. ETIZOLAM [Suspect]
     Active Substance: ETIZOLAM
     Dosage: UNK (AVERAGE USE OF 50 MG PER DAY FOR THE PAST SEVERAL MONTHS, DISSOLVED, IN PROPYLENE GLYCOL)
  6. PHENAZEPAM [Suspect]
     Active Substance: PHENAZEPAM
     Dosage: UNK (SPRAY)

REACTIONS (3)
  - Drug dependence [Unknown]
  - Intentional product misuse [Unknown]
  - Drug abuse [Unknown]
